FAERS Safety Report 10456123 (Version 2)
Quarter: 2014Q4

REPORT INFORMATION
  Report Type: Spontaneous
  Country: US (occurrence: None)
  Receive Date: 20140912
  Receipt Date: 20141002
  Transmission Date: 20150528
  Serious: Yes (Other)
  Sender: FDA-Public Use
  Company Number: 2014-US-011249

PATIENT
  Age: 51 Year
  Sex: Female

DRUGS (2)
  1. XYREM [Suspect]
     Active Substance: SODIUM OXYBATE
     Indication: NARCOLEPSY
     Route: 048
     Dates: start: 201005, end: 2010
  2. AMBIEN [Suspect]
     Active Substance: ZOLPIDEM TARTRATE
     Indication: NARCOLEPSY
     Route: 048

REACTIONS (13)
  - Intervertebral disc degeneration [None]
  - VIIth nerve injury [None]
  - Dysphonia [None]
  - Face injury [None]
  - Somnambulism [None]
  - Injury [None]
  - Burns third degree [None]
  - Autoimmune disorder [None]
  - Multiple allergies [None]
  - Accident [None]
  - Fibromyalgia [None]
  - Surgery [None]
  - Bladder disorder [None]
